FAERS Safety Report 7808667-2 (Version None)
Quarter: 2011Q4

REPORT INFORMATION
  Report Type: 
  Country: None (occurrence: None)
  Receive Date: 20111006
  Receipt Date: 20110920
  Transmission Date: 20120403
  Serious: Yes (Other)
  Sender: FDA-Public Use
  Company Number: 2011MA014202

PATIENT
  Age: 20 Year
  Sex: Male

DRUGS (4)
  1. BETAMETHASONE [Suspect]
     Indication: CORNEAL GRAFT REJECTION
     Dosage: Q2HR, IO
     Route: 031
  2. CHLORAMPHENICOL [Suspect]
     Indication: CORNEAL GRAFT REJECTION
     Dosage: Q8HR, IO
     Route: 031
  3. TRIAMCINOLONE ACETONIDE [Suspect]
     Indication: CORNEAL GRAFT REJECTION
     Dosage: 20 MG,. 1X, IO
     Route: 031
  4. PREDNISOLONE [Suspect]
     Indication: CORNEAL GRAFT REJECTION
     Dosage: 50 MG, QD, PO
     Route: 048

REACTIONS (9)
  - CORNEAL OEDEMA [None]
  - EYE DISCHARGE [None]
  - EYE INFECTION STAPHYLOCOCCAL [None]
  - EYE PAIN [None]
  - DISEASE PROGRESSION [None]
  - SCLERITIS [None]
  - CULTURE POSITIVE [None]
  - INJECTION SITE NECROSIS [None]
  - ANTERIOR CHAMBER DISORDER [None]
